FAERS Safety Report 4806651-4 (Version None)
Quarter: 2005Q4

REPORT INFORMATION
  Report Type: 
  Country: None (occurrence: None)
  Receive Date: 20051019
  Receipt Date: 20051004
  Transmission Date: 20060501
  Serious: Yes (Other)
  Sender: FDA-Public Use
  Company Number: US_0509122218

PATIENT
  Age: 45 Year
  Sex: Female

DRUGS (3)
  1. CYMBALTA [Suspect]
     Indication: DEPRESSION
     Dosage: 30 MG/2 DAY
     Dates: start: 20051103
  2. DITROPAN [Concomitant]
  3. LEXAPRO [Concomitant]

REACTIONS (2)
  - EPILEPSY [None]
  - GRAND MAL CONVULSION [None]
